FAERS Safety Report 4274735-8 (Version None)
Quarter: 2004Q1

REPORT INFORMATION
  Report Type: 
  Country: None (occurrence: None)
  Receive Date: 20040120
  Receipt Date: 20040120
  Transmission Date: 20041129
  Serious: Yes (Life-Threatening, Hospitalization)
  Sender: FDA-Public Use
  Company Number: None

PATIENT
  Age: 65 Year
  Sex: Male
  Weight: 95.2554 kg

DRUGS (6)
  1. ZOLADEX [Suspect]
     Indication: PROSTATE CANCER
     Dosage: 10 MG Q3M INTRAMUSCULAR
     Route: 030
     Dates: start: 20020925, end: 20021014
  2. CASODEX [Suspect]
     Indication: PROSTATE CANCER
     Dosage: 50 MG QD ORAL
     Route: 048
     Dates: start: 20020925, end: 20021014
  3. INSULIN [Concomitant]
  4. ACTOS [Concomitant]
  5. GLYBURIDE [Concomitant]
  6. LASIX [Concomitant]

REACTIONS (2)
  - CEREBROVASCULAR ACCIDENT [None]
  - ROAD TRAFFIC ACCIDENT [None]
